FAERS Safety Report 6442407-7 (Version None)
Quarter: 2009Q4

REPORT INFORMATION
  Report Type: 
  Country: None (occurrence: None)
  Receive Date: 20091112
  Receipt Date: 20091029
  Transmission Date: 20100525
  Serious: Yes (Hospitalization)
  Sender: FDA-Public Use
  Company Number: DE-2009-2248

PATIENT
  Sex: Female

DRUGS (1)
  1. NAVELBINE [Suspect]
     Indication: BREAST CANCER METASTATIC
     Dosage: 30 MG/M2 IV
     Route: 042
     Dates: start: 20091022, end: 20091022

REACTIONS (2)
  - AGRANULOCYTOSIS [None]
  - PLATELET COUNT INCREASED [None]
